FAERS Safety Report 12398319 (Version 1)
Quarter: 2016Q2

REPORT INFORMATION
  Report Type: Spontaneous
  Country: US (occurrence: None)
  Receive Date: 20160523
  Receipt Date: 20160523
  Transmission Date: 20160815
  Serious: Yes (Other)
  Sender: FDA-Public Use
  Company Number: None

PATIENT
  Age: 69 Year
  Sex: Male

DRUGS (2)
  1. DALTEPARIN [Suspect]
     Active Substance: DALTEPARIN
     Indication: METASTATIC NEOPLASM
     Route: 058
     Dates: start: 20160509, end: 20160520
  2. DALTEPARIN [Suspect]
     Active Substance: DALTEPARIN
     Indication: DEEP VEIN THROMBOSIS
     Route: 058
     Dates: start: 20160509, end: 20160520

REACTIONS (3)
  - Epistaxis [None]
  - Contusion [None]
  - Confusional state [None]

NARRATIVE: CASE EVENT DATE: 20160520
